FAERS Safety Report 9342988 (Version 1)
Quarter: 2013Q2

REPORT INFORMATION
  Report Type: Spontaneous
  Country: TW (occurrence: TW)
  Receive Date: 20130611
  Receipt Date: 20130611
  Transmission Date: 20140414
  Serious: Yes (Death)
  Sender: FDA-Public Use
  Company Number: TW-ACTELION-A-CH2013-84088

PATIENT
  Age: 54 Year
  Sex: Male

DRUGS (4)
  1. TRACLEER [Suspect]
     Indication: PULMONARY ARTERIAL HYPERTENSION
     Dosage: 125 MG, BID
     Route: 048
  2. TRACLEER [Suspect]
     Dosage: 62.5 MG, BID
     Route: 048
     Dates: start: 2009
  3. VENTAVIS BAYER SCHERING [Suspect]
     Indication: PULMONARY ARTERIAL HYPERTENSION
     Dosage: UNK
     Route: 055
     Dates: end: 201304
  4. REMODULIN [Concomitant]
     Dosage: UNK
     Dates: start: 201304

REACTIONS (5)
  - Pulmonary arterial hypertension [Fatal]
  - Right ventricular failure [Fatal]
  - Disease progression [Fatal]
  - Oedema peripheral [Fatal]
  - Ascites [Fatal]
